FAERS Safety Report 5235195-3 (Version None)
Quarter: 2007Q1

REPORT INFORMATION
  Report Type: 
  Country: None (occurrence: None)
  Receive Date: 20070212
  Receipt Date: 20070131
  Transmission Date: 20070707
  Serious: Yes (Other)
  Sender: FDA-Public Use
  Company Number: GB-JNJFOC-20070200010

PATIENT
  Sex: Female
  Weight: 81 kg

DRUGS (5)
  1. REMICADE [Suspect]
     Indication: RHEUMATOID ARTHRITIS
     Route: 042
  2. METHOTREXATE [Concomitant]
     Route: 065
  3. FOLIC ACID [Concomitant]
     Route: 065
  4. IBUPROFEN [Concomitant]
     Route: 065
  5. RISEDRONATE SODIUM [Concomitant]
     Route: 065

REACTIONS (1)
  - BOWEN'S DISEASE [None]
